FAERS Safety Report 5976650-8 (Version None)
Quarter: 2008Q4

REPORT INFORMATION
  Report Type: 
  Country: None (occurrence: None)
  Receive Date: 20081201
  Receipt Date: 20081201
  Transmission Date: 20090506
  Serious: Yes (Other)
  Sender: FDA-Public Use
  Company Number: None

PATIENT
  Age: 63 Year
  Sex: Male
  Weight: 95.2554 kg

DRUGS (2)
  1. TRICOR [Suspect]
     Indication: BLOOD TRIGLYCERIDES INCREASED
     Dosage: ONE PILL PER DAY MOUTH
     Route: 048
     Dates: start: 20060917, end: 20080917
  2. TRICOR [Suspect]
     Indication: LOW DENSITY LIPOPROTEIN INCREASED
     Dosage: ONE PILL PER DAY MOUTH
     Route: 048
     Dates: start: 20060917, end: 20080917

REACTIONS (2)
  - ASTHENIA [None]
  - MYALGIA [None]
